FAERS Safety Report 7471864-2 (Version None)
Quarter: 2011Q2

REPORT INFORMATION
  Report Type: 
  Country: None (occurrence: None)
  Receive Date: 20110511
  Receipt Date: 20100608
  Transmission Date: 20111010
  Serious: No
  Sender: FDA-Public Use
  Company Number: A0866217A

PATIENT
  Sex: Female

DRUGS (1)
  1. TYKERB [Suspect]
     Dosage: 250MG FIVE TIMES PER DAY
     Route: 065
     Dates: start: 20100605

REACTIONS (2)
  - VOMITING [None]
  - GASTROOESOPHAGEAL REFLUX DISEASE [None]
